FAERS Safety Report 11388201 (Version 1)
Quarter: 2015Q3

REPORT INFORMATION
  Report Type: Spontaneous
  Country: US (occurrence: US)
  Receive Date: 20150817
  Receipt Date: 20150817
  Transmission Date: 20151125
  Serious: No
  Sender: FDA-Public Use
  Company Number: US-BAYER-2015-401517

PATIENT
  Age: 82 Year
  Sex: Female
  Weight: 65.76 kg

DRUGS (7)
  1. ESTROGEN [Concomitant]
     Active Substance: ESTRONE\SUS SCROFA OVARY
     Dosage: UNK
  2. BAYER LOW DOSE [Concomitant]
     Active Substance: ASPIRIN
     Indication: ISCHAEMIC HEART DISEASE PROPHYLAXIS
     Dosage: 1 DF, QD
     Route: 048
  3. CALCIUM [Concomitant]
     Active Substance: CALCIUM
  4. VITAMIN D [Concomitant]
     Active Substance: CHOLECALCIFEROL
  5. CRANBERRY. [Concomitant]
     Active Substance: CRANBERRY
  6. OXYTROL FOR WOMEN [Suspect]
     Active Substance: OXYBUTYNIN
     Indication: HYPERTONIC BLADDER
     Dosage: 1 PATCH EVERY 4 DAYS
     Route: 061
     Dates: start: 2015
  7. RANITIDINE [Concomitant]
     Active Substance: RANITIDINE\RANITIDINE HYDROCHLORIDE

REACTIONS (1)
  - Acne [Not Recovered/Not Resolved]

NARRATIVE: CASE EVENT DATE: 201507
